FAERS Safety Report 9282560 (Version 1)
Quarter: 2013Q2

REPORT INFORMATION
  Report Type: Spontaneous
  Country: US (occurrence: None)
  Receive Date: 20130509
  Receipt Date: 20130509
  Transmission Date: 20140414
  Serious: Yes (Hospitalization)
  Sender: FDA-Public Use
  Company Number: None

PATIENT
  Age: 77 Year
  Sex: Female
  Weight: 53.62 kg

DRUGS (18)
  1. CARBOPLATIN [Suspect]
  2. PACLITAXEL (TAXOL) [Suspect]
  3. PEGFILGRASTIM (NEULASTA) [Suspect]
  4. ALPRAZOLAM [Concomitant]
  5. COMPAZINE [Concomitant]
  6. DEXAMETHASONE [Concomitant]
  7. FLAGYL [Concomitant]
  8. IMMODIUM [Concomitant]
  9. LACTATE RINGER [Concomitant]
  10. MAGNESIUM SULPHATE [Concomitant]
  11. NOREPINEPHRINE [Concomitant]
  12. NORMAL SALINE [Concomitant]
  13. NORMAL SALINE WITH POTASSIUM CHLORIDE [Concomitant]
  14. ONDANSETRON [Concomitant]
  15. PACKED RED BLOOD CELLS [Concomitant]
  16. PANTOPRAZOLE [Concomitant]
  17. SODIUM BICARBONATE [Concomitant]
  18. VANCOMYCIN [Concomitant]

REACTIONS (4)
  - Aspiration [None]
  - Unresponsive to stimuli [None]
  - Cardiac arrest [None]
  - Coma [None]
